FAERS Safety Report 18497103 (Version 4)
Quarter: 2021Q1

REPORT INFORMATION
  Report Type: Report from Study
  Country: US (occurrence: US)
  Receive Date: 20201112
  Receipt Date: 20210311
  Transmission Date: 20210419
  Serious: Yes (Hospitalization, Other)
  Sender: FDA-Public Use
  Company Number: NVSC2020US297948

PATIENT
  Sex: Female

DRUGS (1)
  1. PROMACTA [Suspect]
     Active Substance: ELTROMBOPAG OLAMINE
     Indication: PRODUCT USED FOR UNKNOWN INDICATION
     Dosage: UNK
     Route: 048

REACTIONS (9)
  - Night blindness [Unknown]
  - Vision blurred [Unknown]
  - Fatigue [Unknown]
  - Ascites [Unknown]
  - Platelet count decreased [Unknown]
  - Macular degeneration [Unknown]
  - Dyschromatopsia [Unknown]
  - Urinary tract infection [Unknown]
  - Hepatic failure [Unknown]
